FAERS Safety Report 16130913 (Version 2)
Quarter: 2019Q2

REPORT INFORMATION
  Report Type: Spontaneous
  Country: US (occurrence: US)
  Receive Date: 20190328
  Receipt Date: 20190424
  Transmission Date: 20190711
  Serious: No
  Sender: FDA-Public Use
  Company Number: US-TEVA-2019-US-1020544

PATIENT
  Sex: Female

DRUGS (10)
  1. HYDRALAZINE [Suspect]
     Active Substance: HYDRALAZINE HYDROCHLORIDE
     Route: 065
  2. METOPROLOL SUCCINATE 100 MG ORAL 24 HR EXT REL TAB [Concomitant]
     Dosage: EXTENDED RELEASE TABLET, TAKE 1 TABLET BY MOUTH 2 TIMES DAILY
     Route: 048
  3. PANTOPRAZOLE [Concomitant]
     Active Substance: PANTOPRAZOLE
     Dosage: TAKE 1 TABLET BY MOUTH DAILY
     Route: 048
  4. ALBUTEROL 2.5 MG/3ML [Concomitant]
     Dosage: INHALATION NEBULIZER SOLUTION, 2.5 MG BY NEBULIZATION 4 (FOUR) TIMES DAILY
  5. DIGOXIN. [Concomitant]
     Active Substance: DIGOXIN
     Dosage: TAKE 1 TABLET BY MOUTH DAILY
     Route: 048
  6. ENTRESTO [Concomitant]
     Active Substance: SACUBITRIL\VALSARTAN
     Dosage: 49-51 MG, TAKE 1 TABLET BY MOUTH 2 TIMES DAILY.
     Route: 048
  7. WARFARIN [Concomitant]
     Active Substance: WARFARIN
     Dosage: TAKE 2 TABLETS BY MOUTH ONCE DAILY FOR 5 DAYS WEEKLY AND TAKE 2.5 TABLETS FOR 2 DAYS, WITH A 5MG TAB
     Route: 048
  8. SPIRONOLACTONE. [Concomitant]
     Active Substance: SPIRONOLACTONE
     Dosage: TAKE 1 TABLET BY MOUTH DAILY
     Route: 048
  9. WARFARIN [Concomitant]
     Active Substance: WARFARIN
     Dosage: TAKE 1 TABLET BY MOUTH EVERY DAY
     Route: 048
  10. FUROSEMIDE. [Concomitant]
     Active Substance: FUROSEMIDE
     Dosage: TAKE 2 TABLETS BY MOUTH 2 TIMES DAILY
     Route: 048

REACTIONS (2)
  - Nausea [Unknown]
  - Drug intolerance [Unknown]
